FAERS Safety Report 5034860-0 (Version None)
Quarter: 2006Q2

REPORT INFORMATION
  Report Type: 
  Country: None (occurrence: None)
  Receive Date: 20060627
  Receipt Date: 20060511
  Transmission Date: 20061013
  Serious: Yes (Other)
  Sender: FDA-Public Use
  Company Number: US-AMGEN-STX179254

PATIENT
  Sex: Female
  Weight: 49.9 kg

DRUGS (4)
  1. ENBREL [Suspect]
     Indication: PSORIASIS
     Route: 058
     Dates: start: 20030916, end: 20060106
  2. LEVOXYL [Concomitant]
  3. FOSAMAX [Concomitant]
  4. ZETIA [Concomitant]

REACTIONS (3)
  - BLINDNESS UNILATERAL [None]
  - DEMYELINATION [None]
  - RETINITIS [None]
